FAERS Safety Report 8103069-6 (Version None)
Quarter: 2012Q1

REPORT INFORMATION
  Report Type: 
  Country: None (occurrence: None)
  Receive Date: 20120201
  Receipt Date: 20120201
  Transmission Date: 20120608
  Serious: Yes (Life-Threatening)
  Sender: FDA-Public Use
  Company Number: None

PATIENT
  Age: 56 Year
  Sex: Male
  Weight: 99.79 kg

DRUGS (2)
  1. AXIRON [Suspect]
     Indication: HYPOGONADISM
     Dosage: ONE PUMP
     Route: 062
     Dates: start: 20120128, end: 20120128
  2. AXIRON [Suspect]
     Indication: BLOOD TESTOSTERONE DECREASED
     Dosage: ONE PUMP
     Route: 062
     Dates: start: 20120128, end: 20120128

REACTIONS (6)
  - HYPERHIDROSIS [None]
  - PRESYNCOPE [None]
  - CONFUSIONAL STATE [None]
  - HYPOGLYCAEMIA [None]
  - TREMOR [None]
  - ANXIETY [None]
